FAERS Safety Report 18919843 (Version 2)
Quarter: 2021Q1

REPORT INFORMATION
  Report Type: Spontaneous
  Country: US (occurrence: US)
  Receive Date: 20210222
  Receipt Date: 20210302
  Transmission Date: 20210420
  Serious: No
  Sender: FDA-Public Use
  Company Number: US-AMGEN-USASP2021023371

PATIENT
  Age: 61 Year
  Sex: Male
  Weight: 71.66 kg

DRUGS (1)
  1. NEULASTA [Suspect]
     Active Substance: PEGFILGRASTIM
     Indication: PANCREATIC CARCINOMA
     Dosage: UNK
     Route: 065

REACTIONS (2)
  - Off label use [Unknown]
  - Device use error [Unknown]

NARRATIVE: CASE EVENT DATE: 20210206
